FAERS Safety Report 8377227-X (Version None)
Quarter: 2012Q2

REPORT INFORMATION
  Report Type: 
  Country: None (occurrence: None)
  Receive Date: 20120522
  Receipt Date: 20120509
  Transmission Date: 20120825
  Serious: No
  Sender: FDA-Public Use
  Company Number: US-ASTRAZENECA-2012SE27127

PATIENT
  Age: 60 Year
  Sex: Male

DRUGS (4)
  1. CLONIDINE [Suspect]
     Route: 065
  2. NORVASC [Concomitant]
  3. ATACAND [Suspect]
     Route: 048
  4. TENORMIN [Suspect]
     Route: 048

REACTIONS (2)
  - DRUG INEFFECTIVE [None]
  - INTENTIONAL DRUG MISUSE [None]
